FAERS Safety Report 7633017-4 (Version None)
Quarter: 2011Q3

REPORT INFORMATION
  Report Type: 
  Country: None (occurrence: None)
  Receive Date: 20110725
  Receipt Date: 20110721
  Transmission Date: 20111222
  Serious: Yes (Other)
  Sender: FDA-Public Use
  Company Number: JP-PFIZER INC-2011166171

PATIENT
  Age: 79 Year
  Sex: Female

DRUGS (4)
  1. CRESTOR [Suspect]
     Indication: HYPERCHOLESTEROLAEMIA
     Dosage: 2.5 MG A DAY
     Route: 048
     Dates: start: 20110603
  2. LYRICA [Suspect]
     Indication: POST HERPETIC NEURALGIA
     Dosage: 150 MG A DAY
     Route: 048
     Dates: start: 20110627, end: 20110713
  3. ADALAT [Suspect]
     Indication: HYPERTENSION
     Dosage: 40 MG A DAY
     Dates: start: 20110603, end: 20110720
  4. AMARYL [Suspect]
     Indication: DIABETES MELLITUS
     Dosage: 2 MG A DAY
     Route: 048

REACTIONS (2)
  - DECREASED ACTIVITY [None]
  - HEADACHE [None]
